FAERS Safety Report 7117975-2 (Version None)
Quarter: 2010Q4

REPORT INFORMATION
  Report Type: 
  Country: None (occurrence: None)
  Receive Date: 20101108
  Receipt Date: 20101029
  Transmission Date: 20110411
  Serious: Yes (Hospitalization, Other)
  Sender: FDA-Public Use
  Company Number: 2010SP036628

PATIENT
  Age: 66 Year
  Sex: Male

DRUGS (7)
  1. MIRTAZAPINE [Suspect]
     Indication: DEPRESSIVE SYMPTOM
     Dosage: ; PO
     Route: 048
     Dates: start: 20090701, end: 20090720
  2. FENOFIBRATE [Suspect]
     Indication: PRODUCT USED FOR UNKNOWN INDICATION
     Dosage: ; PO
     Route: 048
     Dates: end: 20090701
  3. ESCITALOPRAM [Suspect]
     Indication: DEPRESSIVE SYMPTOM
     Dosage: 10 MG; BID; PO
     Route: 048
     Dates: start: 20090701
  4. TERALITHE [Concomitant]
  5. SERESTA [Concomitant]
  6. LARGACTIL [Concomitant]
  7. IMOVANE [Concomitant]

REACTIONS (4)
  - CYTOLYTIC HEPATITIS [None]
  - DISEASE RECURRENCE [None]
  - HYPOMANIA [None]
  - MAJOR DEPRESSION [None]
